FAERS Safety Report 15568618 (Version 1)
Quarter: 2018Q4

REPORT INFORMATION
  Report Type: Spontaneous
  Country: GB (occurrence: GB)
  Receive Date: 20181031
  Receipt Date: 20181031
  Transmission Date: 20190205
  Serious: Yes (Other)
  Sender: FDA-Public Use
  Company Number: GB-009507513-1810GBR012907

PATIENT
  Age: 83 Year
  Sex: Female

DRUGS (1)
  1. SINEMET PLUS [Suspect]
     Active Substance: CARBIDOPA\LEVODOPA
     Indication: PARKINSONISM
     Dosage: 125 MILLIGRAM, BID
     Route: 048
     Dates: start: 2017

REACTIONS (3)
  - Renal impairment [Unknown]
  - Blood pressure decreased [Unknown]
  - Drug effect incomplete [Unknown]
